FAERS Safety Report 13546822 (Version 1)
Quarter: 2017Q2

REPORT INFORMATION
  Report Type: Spontaneous
  Country: FR (occurrence: FR)
  Receive Date: 20170515
  Receipt Date: 20170515
  Transmission Date: 20170830
  Serious: Yes (Death, Hospitalization)
  Sender: FDA-Public Use
  Company Number: FR-INSYS THERAPEUTICS, INC-INS201705-000311

PATIENT
  Age: 31 Year
  Sex: Male

DRUGS (4)
  1. FENTANYL. [Suspect]
     Active Substance: FENTANYL
     Indication: PRODUCT USED FOR UNKNOWN INDICATION
  2. MIDAZOLAM [Suspect]
     Active Substance: MIDAZOLAM HYDROCHLORIDE
  3. REMIFENTANIL [Suspect]
     Active Substance: REMIFENTANIL
  4. TRAMADOL. [Suspect]
     Active Substance: TRAMADOL

REACTIONS (1)
  - Cardio-respiratory arrest [Fatal]
